FAERS Safety Report 23495088 (Version 3)
Quarter: 2024Q1

REPORT INFORMATION
  Report Type: Spontaneous
  Country: US (occurrence: US)
  Receive Date: 20240207
  Receipt Date: 20240226
  Transmission Date: 20240409
  Serious: No
  Sender: FDA-Public Use
  Company Number: US-AMGEN-USASP2024025123

PATIENT
  Age: 71 Year
  Sex: Female

DRUGS (2)
  1. REPATHA [Suspect]
     Active Substance: EVOLOCUMAB
     Indication: Blood cholesterol increased
     Dosage: 140 MG/ML, Q2WK
     Route: 065
     Dates: start: 20240118
  2. REPATHA [Suspect]
     Active Substance: EVOLOCUMAB
     Dosage: 140 MG/ML, Q2WK
     Route: 065

REACTIONS (3)
  - Accidental exposure to product [Unknown]
  - Injection site pain [Unknown]
  - Device difficult to use [Unknown]

NARRATIVE: CASE EVENT DATE: 20240203
